FAERS Safety Report 9625825 (Version 1)
Quarter: 2013Q4

REPORT INFORMATION
  Report Type: Spontaneous
  Country: US (occurrence: None)
  Receive Date: 20131015
  Receipt Date: 20131015
  Transmission Date: 20140711
  Serious: Yes (Other)
  Sender: FDA-Public Use
  Company Number: None

PATIENT
  Age: 55 Year
  Sex: Male
  Weight: 86.18 kg

DRUGS (1)
  1. HYDROCODONE/APAP [Suspect]
     Indication: BACK PAIN
     Dosage: 1 TO 2 TABLETS FOUR TIMES DAILY
     Route: 048
     Dates: start: 20131010

REACTIONS (1)
  - Abdominal pain upper [None]
